FAERS Safety Report 15094002 (Version 4)
Quarter: 2018Q3

REPORT INFORMATION
  Report Type: Report from Study
  Country: US (occurrence: US)
  Receive Date: 20180629
  Receipt Date: 20180925
  Transmission Date: 20181010
  Serious: Yes (Other)
  Sender: FDA-Public Use
  Company Number: PHEH2018US025394

PATIENT
  Sex: Female

DRUGS (2)
  1. HUMIRA [Suspect]
     Active Substance: ADALIMUMAB
     Indication: PRODUCT USED FOR UNKNOWN INDICATION
     Route: 065
  2. COSENTYX [Suspect]
     Active Substance: SECUKINUMAB
     Indication: ANKYLOSING SPONDYLITIS
     Dosage: UNK, QMO
     Route: 058

REACTIONS (20)
  - Spinal disorder [Unknown]
  - Skin disorder [Unknown]
  - Hypersensitivity [Unknown]
  - Distractibility [Unknown]
  - Skin cancer [Unknown]
  - Sensory loss [Unknown]
  - Skin ulcer [Unknown]
  - Mobility decreased [Recovering/Resolving]
  - Cognitive disorder [Unknown]
  - Somnolence [Unknown]
  - Pain [Not Recovered/Not Resolved]
  - Drug ineffective [Unknown]
  - Neck pain [Unknown]
  - Amnesia [Unknown]
  - Injection site hypertrophy [Unknown]
  - Visual impairment [Unknown]
  - Central nervous system lesion [Not Recovered/Not Resolved]
  - Blood pressure abnormal [Unknown]
  - Migraine [Recovering/Resolving]
  - Bladder disorder [Unknown]
